FAERS Safety Report 6879930-7 (Version None)
Quarter: 2010Q3

REPORT INFORMATION
  Report Type: 
  Country: None (occurrence: None)
  Receive Date: 20100728
  Receipt Date: 20100723
  Transmission Date: 20110219
  Serious: Yes (Other)
  Sender: FDA-Public Use
  Company Number: JP-SANOFI-AVENTIS-2010SA032278

PATIENT
  Age: 64 Year
  Sex: Male

DRUGS (7)
  1. ALLEGRA [Suspect]
     Indication: URTICARIA
     Route: 048
     Dates: start: 20070205, end: 20100101
  2. AMARYL [Suspect]
     Indication: DIABETES MELLITUS
     Route: 048
     Dates: start: 20070717
  3. VALSARTAN [Concomitant]
  4. AMLODIPINE BESYLATE [Concomitant]
  5. ASPIRIN [Concomitant]
  6. LOXONIN [Concomitant]
     Route: 048
  7. MYONAL [Concomitant]
     Route: 048

REACTIONS (5)
  - ABDOMINAL PAIN [None]
  - COLD SWEAT [None]
  - PALPITATIONS [None]
  - SYNCOPE [None]
  - VOMITING [None]
